FAERS Safety Report 5527871-X (Version None)
Quarter: 2007Q4

REPORT INFORMATION
  Report Type: 
  Country: None (occurrence: None)
  Receive Date: 20071128
  Receipt Date: 20071116
  Transmission Date: 20080405
  Serious: Yes (Other)
  Sender: FDA-Public Use
  Company Number: ZA-JNJFOC-20071106909

PATIENT
  Age: 55 Year
  Sex: Male
  Weight: 82 kg

DRUGS (4)
  1. REVELLEX [Suspect]
  2. REVELLEX [Suspect]
     Indication: RHEUMATOID ARTHRITIS
  3. DEXACORT [Concomitant]
     Indication: RHEUMATOID ARTHRITIS
  4. VOLTAREN [Concomitant]
     Indication: RHEUMATOID ARTHRITIS
     Route: 048

REACTIONS (1)
  - PALPITATIONS [None]
